FAERS Safety Report 9109757 (Version 1)
Quarter: 2013Q1

REPORT INFORMATION
  Report Type: Spontaneous
  Country: US (occurrence: US)
  Receive Date: 20130222
  Receipt Date: 20130222
  Transmission Date: 20140127
  Serious: No
  Sender: FDA-Public Use
  Company Number: US-PFIZER INC-2013065406

PATIENT
  Sex: 0

DRUGS (1)
  1. CELEBREX [Suspect]
     Dosage: UNK

REACTIONS (4)
  - Back pain [Unknown]
  - Arthritis [Unknown]
  - Nerve compression [Unknown]
  - Musculoskeletal stiffness [Unknown]
